FAERS Safety Report 19068232 (Version 1)
Quarter: 2021Q1

REPORT INFORMATION
  Report Type: Spontaneous
  Country: DE (occurrence: DE)
  Receive Date: 20210329
  Receipt Date: 20210329
  Transmission Date: 20210420
  Serious: Yes (Life-Threatening, Hospitalization, Other)
  Sender: FDA-Public Use
  Company Number: DE-PURACAP-DE-2021EPCLIT00305

PATIENT
  Age: 57 Year
  Sex: Female

DRUGS (6)
  1. NOREPINEPHRINE. [Interacting]
     Active Substance: NOREPINEPHRINE
     Indication: POISONING
     Route: 065
  2. AMLODIPINE [Suspect]
     Active Substance: AMLODIPINE BESYLATE
     Indication: PRODUCT USED FOR UNKNOWN INDICATION
     Route: 065
  3. EPINEPHRINE. [Interacting]
     Active Substance: EPINEPHRINE
     Indication: POISONING
     Route: 065
  4. DOBUTAMINE [Interacting]
     Active Substance: DOBUTAMINE HYDROCHLORIDE
     Indication: POISONING
     Route: 065
  5. VASOPRESSIN. [Interacting]
     Active Substance: VASOPRESSIN
     Indication: POISONING
     Route: 065
  6. GLUCAGON. [Interacting]
     Active Substance: GLUCAGON
     Indication: POISONING
     Route: 065

REACTIONS (6)
  - Suicide attempt [Unknown]
  - Toxicity to various agents [Recovered/Resolved]
  - Hypotension [Recovered/Resolved]
  - Vasoplegia syndrome [Recovered/Resolved]
  - Respiratory failure [Recovered/Resolved]
  - Intentional overdose [Unknown]
